FAERS Safety Report 9032689 (Version 1)
Quarter: 2013Q1

REPORT INFORMATION
  Report Type: Spontaneous
  Country: US (occurrence: None)
  Receive Date: 20130110
  Receipt Date: 20130110
  Transmission Date: 20140127
  Serious: Yes (Other)
  Sender: FDA-Public Use
  Company Number: PR-AE13-000010

PATIENT
  Age: 22 Year
  Sex: Female

DRUGS (2)
  1. BC POWDER (ASPIRIN 845 MG/CAFFEINE 65 MG) [Suspect]
     Indication: HEADACHE
     Route: 048
     Dates: start: 20130103
  2. ZOFRAN (ONDANSETRON) [Concomitant]

REACTIONS (3)
  - Nausea [None]
  - Deafness bilateral [None]
  - Exposure during pregnancy [None]
